FAERS Safety Report 21311915 (Version 1)
Quarter: 2022Q3

REPORT INFORMATION
  Report Type: Spontaneous
  Country: CN (occurrence: CN)
  Receive Date: 20220909
  Receipt Date: 20220909
  Transmission Date: 20221027
  Serious: Yes (Other)
  Sender: FDA-Public Use
  Company Number: None

PATIENT
  Age: 6 Year
  Sex: Female
  Weight: 19.7 kg

DRUGS (5)
  1. CYCLOPHOSPHAMIDE [Suspect]
     Active Substance: CYCLOPHOSPHAMIDE
     Indication: Acute lymphocytic leukaemia
     Dosage: INJECTION, 0.82 G, QD, DILUTED WITH 4:1 GLUCOSE AND SODIUM CHLORIDE SOLUTION 250ML
     Route: 041
     Dates: start: 20220622, end: 20220622
  2. DEXTROSE\SODIUM CHLORIDE [Suspect]
     Active Substance: DEXTROSE\SODIUM CHLORIDE
     Indication: Medication dilution
     Dosage: 4:1 GLUCOSE AND SODIUM CHLORIDE SOLUTION 250ML, DILUTED IN CYCLOPHOSPHAMIDE (0.82 G)
     Route: 041
     Dates: start: 20220622, end: 20220622
  3. SODIUM CHLORIDE [Suspect]
     Active Substance: SODIUM CHLORIDE
     Indication: Medication dilution
     Dosage: 250 ML, BID, DILUTED IN CYTARABINE (0.82G)
     Route: 041
     Dates: start: 20220622, end: 20220625
  4. CYTARABINE [Suspect]
     Active Substance: CYTARABINE
     Indication: Acute lymphocytic leukaemia
     Dosage: 0.82 G, BID, DILUTED WITH 0.9% SODIUM CHLORIDE 250ML
     Route: 041
     Dates: start: 20220622, end: 20220625
  5. MERCAPTOPURINE [Suspect]
     Active Substance: MERCAPTOPURINE
     Indication: Acute lymphocytic leukaemia
     Dosage: 40 MG, QN
     Route: 048
     Dates: start: 20220622, end: 20220625

REACTIONS (1)
  - Myelosuppression [Recovering/Resolving]

NARRATIVE: CASE EVENT DATE: 20220701
